FAERS Safety Report 5429278-2 (Version None)
Quarter: 2007Q3

REPORT INFORMATION
  Report Type: 
  Country: None (occurrence: None)
  Receive Date: 20070829
  Receipt Date: 20070827
  Transmission Date: 20080115
  Serious: Yes (Other)
  Sender: FDA-Public Use
  Company Number: US-BAYER-200712285BWH

PATIENT
  Age: 45 Year
  Sex: Female

DRUGS (2)
  1. ADALAT CC [Suspect]
     Indication: BLOOD PRESSURE MANAGEMENT
     Route: 048
     Dates: start: 20050101
  2. DIOVAN [Concomitant]
     Indication: BLOOD PRESSURE MANAGEMENT
     Dates: end: 20050101

REACTIONS (2)
  - CYSTITIS [None]
  - GESTATIONAL DIABETES [None]
